FAERS Safety Report 24587067 (Version 1)
Quarter: 2024Q4

REPORT INFORMATION
  Report Type: Spontaneous
  Country: NL (occurrence: NL)
  Receive Date: 20241107
  Receipt Date: 20241107
  Transmission Date: 20250115
  Serious: Yes (Hospitalization)
  Sender: TEVA
  Company Number: None

PATIENT
  Age: 90 Year
  Sex: Male
  Weight: 63.5 kg

DRUGS (2)
  1. HYDROCHLOROTHIAZIDE [Suspect]
     Active Substance: HYDROCHLOROTHIAZIDE
     Indication: Hypertension
     Dosage: BRAND NAME NOT SPECIFIED
     Route: 065
     Dates: start: 20240915, end: 20241010
  2. LOSARTAN [Concomitant]
     Active Substance: LOSARTAN
     Indication: Product used for unknown indication
     Dosage: TABLET FO / BRAND NAME NOT SPECIFIED
     Route: 065

REACTIONS (5)
  - Hiccups [Recovered/Resolved]
  - Agitation [Recovered/Resolved]
  - Incontinence [Recovered/Resolved]
  - Insomnia [Recovered/Resolved]
  - Blood sodium decreased [Unknown]
